FAERS Safety Report 8851383 (Version 1)
Quarter: 2012Q4

REPORT INFORMATION
  Report Type: 
  Country: BR (occurrence: BR)
  Receive Date: 20121022
  Receipt Date: 20121022
  Transmission Date: 20130627
  Serious: Yes (Other)
  Sender: FDA-Public Use
  Company Number: BR-AMGEN-BRASP2012065767

PATIENT
  Age: 64 Year
  Sex: Female
  Weight: 57 kg

DRUGS (3)
  1. ENBREL [Suspect]
     Indication: RHEUMATOID ARTHRITIS
     Dosage: UNK
     Route: 065
     Dates: start: 2010
  2. ENBREL [Suspect]
     Dosage: 50 mg, once weekly
     Route: 058
     Dates: start: 201201, end: 201202
  3. PANTOPRAZOLE SODIUM [Concomitant]
     Indication: HIATUS HERNIA
     Dosage: strength 40 mg
     Dates: start: 2002

REACTIONS (3)
  - Diaphragmatic rupture [Unknown]
  - Hypertension [Unknown]
  - Pneumonia [Unknown]
